FAERS Safety Report 24193321 (Version 2)
Quarter: 2024Q3

REPORT INFORMATION
  Report Type: Spontaneous
  Country: IT (occurrence: IT)
  Receive Date: 20240809
  Receipt Date: 20240820
  Transmission Date: 20241017
  Serious: Yes (Other)
  Sender: NOVARTIS
  Company Number: IT-002147023-NVSC2024IT148489

PATIENT
  Age: 25 Year
  Sex: Male

DRUGS (3)
  1. KESIMPTA [Suspect]
     Active Substance: OFATUMUMAB
     Indication: Product used for unknown indication
     Dosage: UNK (INFUSION)
     Route: 058
     Dates: start: 20240627
  2. KESIMPTA [Suspect]
     Active Substance: OFATUMUMAB
     Dosage: UNK, (INFUSION)
     Route: 058
     Dates: start: 20240704
  3. KESIMPTA [Suspect]
     Active Substance: OFATUMUMAB
     Dosage: UNK (INFUSION)
     Route: 058
     Dates: start: 20240710

REACTIONS (10)
  - Erythema [Recovered/Resolved]
  - Pruritus [Recovered/Resolved]
  - Rash [Recovered/Resolved]
  - Nausea [Unknown]
  - Abdominal pain upper [Unknown]
  - Flushing [Unknown]
  - Urticaria [Unknown]
  - Papule [Unknown]
  - Fixed eruption [Unknown]
  - Eye oedema [Unknown]

NARRATIVE: CASE EVENT DATE: 20240711
